FAERS Safety Report 12716869 (Version 1)
Quarter: 2016Q3

REPORT INFORMATION
  Report Type: Spontaneous
  Country: US (occurrence: US)
  Receive Date: 20160906
  Receipt Date: 20160906
  Transmission Date: 20161109
  Serious: Yes (Hospitalization, Other)
  Sender: FDA-Public Use
  Company Number: US-SMITH AND NEPHEW, INC-2016SMT00751

PATIENT
  Sex: Female
  Weight: 68.93 kg

DRUGS (5)
  1. REGRANEX [Suspect]
     Active Substance: BECAPLERMIN
     Dosage: UNK
     Dates: start: 201601
  2. REGRANEX [Suspect]
     Active Substance: BECAPLERMIN
     Indication: DIABETIC ULCER
     Dosage: UNK, 2X/DAY
     Route: 061
     Dates: start: 2006
  3. UNSPECIFIED BLOOD PRESSURE MEDICATIONS [Concomitant]
  4. UNSEPCIFIED THYROID MEDICATIONS [Concomitant]
  5. INSULIN (UNSPECIFIED) [Concomitant]

REACTIONS (6)
  - Osteomyelitis [Recovering/Resolving]
  - Hypertension [Unknown]
  - Infection [Recovering/Resolving]
  - Impaired healing [Not Recovered/Not Resolved]
  - Off label use [Unknown]
  - Amputation [Recovered/Resolved]

NARRATIVE: CASE EVENT DATE: 2016
